FAERS Safety Report 8516025-0 (Version None)
Quarter: 2012Q3

REPORT INFORMATION
  Report Type: 
  Country: None (occurrence: None)
  Receive Date: 20120717
  Receipt Date: 20120410
  Transmission Date: 20120928
  Serious: No
  Sender: FDA-Public Use
  Company Number: US-NOVEN-12US004438

PATIENT
  Sex: Female

DRUGS (2)
  1. FENTANYL [Suspect]
     Indication: PAIN
     Dosage: 100 UG/HR
     Route: 062
     Dates: start: 20120401
  2. FENTANYL [Suspect]
     Dosage: 100 UG/HR
     Route: 063
     Dates: start: 20120401

REACTIONS (8)
  - ABDOMINAL PAIN UPPER [None]
  - DRUG ADMINISTRATION ERROR [None]
  - RASH [None]
  - DIARRHOEA [None]
  - CHILLS [None]
  - HOT FLUSH [None]
  - HYPERHIDROSIS [None]
  - PRODUCT QUALITY ISSUE [None]
